FAERS Safety Report 23086237 (Version 1)
Quarter: 2023Q4

REPORT INFORMATION
  Report Type: Report from Study
  Country: US (occurrence: US)
  Receive Date: 20231019
  Receipt Date: 20231019
  Transmission Date: 20240110
  Serious: Yes (Death)
  Sender: FDA-Public Use
  Company Number: US-PFIZER INC-08H-163-0314395-00

PATIENT
  Age: 85 Year
  Sex: Female

DRUGS (1)
  1. DOBUTAMINE HYDROCHLORIDE [Suspect]
     Active Substance: DOBUTAMINE HYDROCHLORIDE
     Indication: Cardiac stress test
     Dosage: FREQ: 40 UG/MIN, NOT REPORTED

REACTIONS (2)
  - Left ventricle outflow tract obstruction [Fatal]
  - Stress cardiomyopathy [Fatal]
